FAERS Safety Report 19397086 (Version 1)
Quarter: 2021Q2

REPORT INFORMATION
  Report Type: Report from Study
  Country: FR (occurrence: FR)
  Receive Date: 20210609
  Receipt Date: 20210609
  Transmission Date: 20210717
  Serious: Yes (Death, Other)
  Sender: FDA-Public Use
  Company Number: FR-GILEAD-2021-0529472

PATIENT
  Age: 44 Year
  Sex: Female

DRUGS (2)
  1. SOLUPRED [METHYLPREDNISOLONE] [Concomitant]
     Active Substance: METHYLPREDNISOLONE
     Dosage: 100 MG, MORNING
  2. SACITUZUMAB GOVITECAN. [Suspect]
     Active Substance: SACITUZUMAB GOVITECAN
     Indication: TRIPLE NEGATIVE BREAST CANCER
     Dosage: UNK
     Route: 065
     Dates: end: 20210409

REACTIONS (3)
  - Death [Fatal]
  - Hepatic lesion [Unknown]
  - Disease progression [Unknown]

NARRATIVE: CASE EVENT DATE: 202105
